FAERS Safety Report 8463847 (Version 2)
Quarter: 2013Q3

REPORT INFORMATION
  Report Type: Report from Study
  Country: MX (occurrence: MX)
  Receive Date: 20120316
  Receipt Date: 20130814
  Transmission Date: 20140515
  Serious: Yes (Other)
  Sender: FDA-Public Use
  Company Number: PHHY2012MX022997

PATIENT
  Age: 73 Year
  Sex: Female

DRUGS (3)
  1. DIOVAN [Suspect]
     Indication: HYPERTENSION
     Dosage: 1 DF(80MG), DAILY
     Route: 048
     Dates: start: 200709
  2. CALCIUM [Concomitant]
     Dosage: 2 UKN, DAILY
  3. ASPIRINA [Concomitant]
     Indication: CARDIOVASCULAR DISORDER
     Dosage: 1 UKN, DAILY
     Dates: start: 201305

REACTIONS (14)
  - Cartilage injury [Not Recovered/Not Resolved]
  - Sensation of heaviness [Not Recovered/Not Resolved]
  - Arthralgia [Not Recovered/Not Resolved]
  - Abasia [Not Recovered/Not Resolved]
  - Muscle strain [Not Recovered/Not Resolved]
  - Bone disorder [Not Recovered/Not Resolved]
  - Ear disorder [Unknown]
  - Renal disorder [Unknown]
  - Gastrooesophageal reflux disease [Recovered/Resolved]
  - Throat tightness [Unknown]
  - Blood glucose increased [Not Recovered/Not Resolved]
  - Malaise [Unknown]
  - Myalgia [Not Recovered/Not Resolved]
  - Insomnia [Not Recovered/Not Resolved]
